FAERS Safety Report 4464849-1 (Version None)
Quarter: 2004Q4

REPORT INFORMATION
  Report Type: 
  Country: None (occurrence: None)
  Receive Date: 20041004
  Receipt Date: 20031114
  Transmission Date: 20050328
  Serious: No
  Sender: FDA-Public Use
  Company Number: 354395

PATIENT
  Age: 53 Year
  Sex: Female

DRUGS (3)
  1. COREG [Suspect]
     Dosage: 3.125MG PER DAY
     Route: 048
     Dates: start: 20000101, end: 20000101
  2. LASIX [Concomitant]
  3. ACE INHIBITOR [Concomitant]

REACTIONS (1)
  - BLOOD PRESSURE DECREASED [None]
